FAERS Safety Report 11965025 (Version 1)
Quarter: 2016Q1

REPORT INFORMATION
  Report Type: Spontaneous
  Country: US (occurrence: None)
  Receive Date: 20160125
  Receipt Date: 20160125
  Transmission Date: 20160526
  Serious: Yes (Other)
  Sender: FDA-Public Use
  Company Number: None

PATIENT
  Age: 68 Year
  Sex: Female
  Weight: 85 kg

DRUGS (16)
  1. MOXIFLOXACIN 400MG [Suspect]
     Active Substance: MOXIFLOXACIN
     Indication: PNEUMONIA
     Route: 042
     Dates: start: 20160120, end: 20160121
  2. CLOBETASOL (TEMOVATE) [Concomitant]
  3. TAPENTADOL (NUCYNTA ER) [Concomitant]
  4. TIZANDINE (ZANAFLEX) [Concomitant]
  5. COUMADIN [Concomitant]
     Active Substance: WARFARIN SODIUM
  6. FOLIC ACID (FOLVITE) [Concomitant]
  7. OXYCODONE HYDROCHLORIDE. [Concomitant]
     Active Substance: OXYCODONE HYDROCHLORIDE
  8. GABAPENTIN (NEURONTIN) [Concomitant]
  9. METHOTREXATE [Concomitant]
     Active Substance: METHOTREXATE
  10. ESCITALOPRAM (LEXAPRO) [Concomitant]
  11. LIORESAL [Concomitant]
     Active Substance: BACLOFEN
  12. LASIX [Concomitant]
     Active Substance: FUROSEMIDE
  13. VISCOUS LIDOCAINE (LIDOCAINE VISCOUS) [Concomitant]
  14. ONDANSETRON (ZOFRAN, AS HYDROCHLORIDE) [Concomitant]
  15. ESOMEPRAZOLE MAGNESIUM (NEXIUM ORAL) [Concomitant]
  16. ERGOCALCIFEROL. [Concomitant]
     Active Substance: ERGOCALCIFEROL

REACTIONS (6)
  - Torsade de pointes [None]
  - Blood potassium decreased [None]
  - Electrocardiogram QT prolonged [None]
  - Blood magnesium decreased [None]
  - Cardiac arrest [None]
  - Ventricular tachycardia [None]

NARRATIVE: CASE EVENT DATE: 20160121
